FAERS Safety Report 18340969 (Version 3)
Quarter: 2025Q2

REPORT INFORMATION
  Report Type: Spontaneous
  Country: FR (occurrence: FR)
  Receive Date: 20201003
  Receipt Date: 20250522
  Transmission Date: 20250716
  Serious: Yes (Other)
  Sender: AUROBINDO
  Company Number: FR-BRISTOL-MYERS SQUIBB COMPANY-BMS-2020-067411

PATIENT
  Age: 70 Year
  Sex: Female
  Weight: 51 kg

DRUGS (8)
  1. CARBOPLATIN [Suspect]
     Active Substance: CARBOPLATIN
     Indication: Neoplasm
     Route: 065
     Dates: start: 201805
  2. CARBOPLATIN [Suspect]
     Active Substance: CARBOPLATIN
     Indication: Endometrial cancer recurrent
     Route: 065
     Dates: start: 20240415
  3. CARBOPLATIN [Suspect]
     Active Substance: CARBOPLATIN
     Route: 065
     Dates: start: 20240730, end: 20241219
  4. PACLITAXEL [Suspect]
     Active Substance: PACLITAXEL
     Indication: Endometrial cancer recurrent
     Route: 065
     Dates: start: 20240415
  5. PACLITAXEL [Suspect]
     Active Substance: PACLITAXEL
     Indication: Neoplasm
     Route: 065
     Dates: start: 20240730, end: 20241219
  6. DOSTARLIMAB [Suspect]
     Active Substance: DOSTARLIMAB
     Indication: Neoplasm
     Route: 042
     Dates: start: 20240415, end: 20240415
  7. DOSTARLIMAB [Suspect]
     Active Substance: DOSTARLIMAB
     Indication: Endometrial cancer recurrent
     Route: 042
     Dates: start: 20241219
  8. TAXOL [Suspect]
     Active Substance: PACLITAXEL
     Indication: Product used for unknown indication
     Route: 065
     Dates: start: 201805

REACTIONS (3)
  - Haematotoxicity [Unknown]
  - Neoplasm recurrence [Unknown]
  - Malignant neoplasm progression [Unknown]

NARRATIVE: CASE EVENT DATE: 20180501
